FAERS Safety Report 8839743 (Version 1)
Quarter: 2012Q4

REPORT INFORMATION
  Report Type: Spontaneous
  Country: US (occurrence: None)
  Receive Date: 20121011
  Receipt Date: 20121011
  Transmission Date: 20130627
  Serious: Yes (Other)
  Sender: FDA-Public Use
  Company Number: None

PATIENT
  Age: 53 Year
  Sex: Female
  Weight: 75.75 kg

DRUGS (2)
  1. NAPROXEN [Suspect]
     Indication: BACK PAIN
     Route: 048
     Dates: start: 20120708, end: 20120729
  2. NAPROXEN [Suspect]
     Indication: INFLAMMATION
     Route: 048
     Dates: start: 20120708, end: 20120729

REACTIONS (3)
  - Diarrhoea [None]
  - Gastrointestinal pain [None]
  - Vomiting [None]
